FAERS Safety Report 26054964 (Version 1)
Quarter: 2025Q4

REPORT INFORMATION
  Report Type: Other
  Country: US (occurrence: SA)
  Receive Date: 20251117
  Receipt Date: 20251117
  Transmission Date: 20260118
  Serious: Yes (unspecified)
  Sender: SAPTALIS PHARMACEUTICALS LLC
  Company Number: SA-Saptalis Pharmaceuticals LLC-2188719

PATIENT
  Age: 60 Year
  Sex: Male

DRUGS (1)
  1. METFORMIN HYDROCHLORIDE [Suspect]
     Active Substance: METFORMIN HYDROCHLORIDE
     Indication: Type 2 diabetes mellitus

REACTIONS (1)
  - Haemolytic anaemia [Recovered/Resolved]
